FAERS Safety Report 21399692 (Version 3)
Quarter: 2024Q3

REPORT INFORMATION
  Report Type: Spontaneous
  Country: DE (occurrence: DE)
  Receive Date: 20221001
  Receipt Date: 20240911
  Transmission Date: 20241016
  Serious: Yes (Hospitalization, Other)
  Sender: TEVA
  Company Number: DE-ADRED-04862-03

PATIENT
  Age: 78 Year
  Sex: Male

DRUGS (9)
  1. CAPECITABINE [Suspect]
     Active Substance: CAPECITABINE
     Indication: Product used for unknown indication
     Dosage: SCHEMA
     Route: 065
  2. CAPECITABINE [Concomitant]
     Active Substance: CAPECITABINE
     Indication: Product used for unknown indication
     Dosage: 1-0-1-0
     Route: 065
  3. HYDROCHLOROTHIAZIDE [Concomitant]
     Active Substance: HYDROCHLOROTHIAZIDE
     Indication: Product used for unknown indication
     Dosage: 1-0-0-0
     Route: 065
  4. CETUXIMAB [Suspect]
     Active Substance: CETUXIMAB
     Indication: Product used for unknown indication
     Dosage: SCHEMA
     Route: 065
     Dates: end: 20210629
  5. AMIODARONE [Concomitant]
     Active Substance: AMIODARONE
     Indication: Product used for unknown indication
     Dosage: 1-0-0-0
     Route: 065
  6. LERCANIDIPINE [Concomitant]
     Active Substance: LERCANIDIPINE
     Indication: Product used for unknown indication
     Dosage: 0-0-1-0
     Route: 065
  7. CANDESARTAN [Concomitant]
     Active Substance: CANDESARTAN
     Indication: Product used for unknown indication
     Dosage: 0-0-1-0
     Route: 065
  8. IRINOTECAN [Suspect]
     Active Substance: IRINOTECAN
     Indication: Product used for unknown indication
     Dosage: SCHEMA
     Route: 065
  9. SPIRONOLACTONE [Concomitant]
     Active Substance: SPIRONOLACTONE
     Indication: Product used for unknown indication
     Dosage: 1-0-0-0
     Route: 065

REACTIONS (9)
  - Hypotension [Unknown]
  - Syncope [Recovering/Resolving]
  - Systemic infection [Unknown]
  - Nausea [Unknown]
  - Urinary incontinence [Unknown]
  - General physical health deterioration [Recovering/Resolving]
  - Anaphylactic reaction [Recovering/Resolving]
  - Loss of consciousness [Unknown]
  - Electrocardiogram abnormal [Unknown]

NARRATIVE: CASE EVENT DATE: 20210629
